FAERS Safety Report 21558268 (Version 2)
Quarter: 2023Q1

REPORT INFORMATION
  Report Type: Other
  Country: DE (occurrence: None)
  Receive Date: 20221107
  Receipt Date: 20230106
  Transmission Date: 20230418
  Serious: No
  Sender: FDA-Public Use
  Company Number: DE-ROCHE-3213714

PATIENT
  Age: 36 Year
  Sex: Female

DRUGS (12)
  1. OCREVUS [Suspect]
     Active Substance: OCRELIZUMAB
     Indication: Relapsing-remitting multiple sclerosis
     Dosage: 16/NOV/2021 (DATE OF THE 6TH MAINTENANCE DOSE)?28/JUN/2022 (DATE OF THE 7TH MAINTENANCE DOSE),
     Route: 042
     Dates: start: 20181115
  2. OCREVUS [Suspect]
     Active Substance: OCRELIZUMAB
     Route: 042
     Dates: start: 20181115
  3. PREGABALIN [Concomitant]
     Active Substance: PREGABALIN
     Dosage: 75 MG - 0 - 100 MG
  4. FOLIC ACID [Concomitant]
     Active Substance: FOLIC ACID
  5. ESCITALOPRAM [Concomitant]
     Active Substance: ESCITALOPRAM OXALATE
  6. SOLIFENACIN [Concomitant]
     Active Substance: SOLIFENACIN
  7. VITAMIN D3 [Concomitant]
     Active Substance: CHOLECALCIFEROL
  8. MIRABEGRON [Concomitant]
     Active Substance: MIRABEGRON
  9. CANDESARTAN [Concomitant]
     Active Substance: CANDESARTAN
  10. CARBAMAZEPINE [Concomitant]
     Active Substance: CARBAMAZEPINE
     Dosage: 200 MG - 0 - 400 MG
  11. ORTOTON FORTE [Concomitant]
  12. ESOMEPRAZOLE [Concomitant]
     Active Substance: ESOMEPRAZOLE

REACTIONS (4)
  - Migraine [Recovered/Resolved]
  - COVID-19 [Recovered/Resolved]
  - Functional gastrointestinal disorder [Not Recovered/Not Resolved]
  - Large intestine polyp [Recovered/Resolved]

NARRATIVE: CASE EVENT DATE: 20211116
